FAERS Safety Report 15299240 (Version 1)
Quarter: 2018Q3

REPORT INFORMATION
  Report Type: Report from Study
  Country: None (occurrence: DE)
  Receive Date: 20180821
  Receipt Date: 20180821
  Transmission Date: 20181010
  Serious: Yes (Other)
  Sender: FDA-Public Use
  Company Number: DE-KADMON PHARMACEUTICALS, LLC-KAD-201808-01373

PATIENT
  Age: 77 Year
  Sex: Female
  Weight: 68 kg

DRUGS (11)
  1. DIGITOXIN [Concomitant]
     Active Substance: DIGITOXIN
     Dosage: 0.07 MG
  2. RIBAVIRIN. [Suspect]
     Active Substance: RIBAVIRIN
     Dosage: 600 MG
     Dates: start: 20150506, end: 20150602
  3. MARCUMAR [Concomitant]
     Active Substance: PHENPROCOUMON
  4. RIBAVIRIN. [Suspect]
     Active Substance: RIBAVIRIN
     Dosage: 200 MG
     Dates: start: 20150422, end: 20150428
  5. RIBAVIRIN. [Suspect]
     Active Substance: RIBAVIRIN
     Indication: CHRONIC HEPATITIS C
     Dosage: 800 MG
     Dates: start: 20150429, end: 20150505
  6. RIBAVIRIN. [Suspect]
     Active Substance: RIBAVIRIN
     Dosage: 600 MG
     Dates: start: 20150408, end: 20150414
  7. HYDROCHLOROTHIAZIDE. [Concomitant]
     Active Substance: HYDROCHLOROTHIAZIDE
  8. GLIMEPIRID [Concomitant]
     Active Substance: GLIMEPIRIDE
  9. BISOPROLOL RATIOPHARM [Concomitant]
     Active Substance: BISOPROLOL
     Dosage: 5 MG
     Dates: start: 20061101
  10. RIBAVIRIN. [Suspect]
     Active Substance: RIBAVIRIN
     Dosage: 1000 MG
     Route: 048
     Dates: start: 20150310, end: 20150407
  11. LEDIPASVIR/SOFOSBUVIR [Suspect]
     Active Substance: LEDIPASVIR\SOFOSBUVIR
     Indication: CHRONIC HEPATITIS C
     Dosage: 90/400 MG
     Route: 048
     Dates: start: 20150310, end: 20150601

REACTIONS (3)
  - Liver function test increased [Not Recovered/Not Resolved]
  - Anaemia [Recovering/Resolving]
  - Fatigue [Recovering/Resolving]

NARRATIVE: CASE EVENT DATE: 20150408
